FAERS Safety Report 25998376 (Version 1)
Quarter: 2025Q4

REPORT INFORMATION
  Report Type: Spontaneous
  Country: US (occurrence: US)
  Receive Date: 20251105
  Receipt Date: 20251105
  Transmission Date: 20260117
  Serious: Yes (Other)
  Sender: COOPERSURGICAL
  Company Number: US-COOPERSURGICAL, INC.-2025CPS007681

PATIENT
  Age: 27 Year
  Sex: Female
  Weight: 71.655 kg

DRUGS (1)
  1. PARAGARD T 380A [Suspect]
     Active Substance: COPPER
     Dosage: UNK
     Route: 015
     Dates: start: 20120305

REACTIONS (31)
  - Reproductive complication associated with device [Unknown]
  - Uterine leiomyoma calcification [Not Recovered/Not Resolved]
  - Surgery [Recovered/Resolved]
  - Device breakage [Not Recovered/Not Resolved]
  - Foreign body in reproductive tract [Not Recovered/Not Resolved]
  - Complication of device removal [Not Recovered/Not Resolved]
  - Embedded device [Not Recovered/Not Resolved]
  - Pelvic inflammatory disease [Unknown]
  - Emotional distress [Unknown]
  - Irritability [Not Recovered/Not Resolved]
  - Depression [Not Recovered/Not Resolved]
  - Anxiety [Not Recovered/Not Resolved]
  - Increased tendency to bruise [Not Recovered/Not Resolved]
  - Cervix inflammation [Not Recovered/Not Resolved]
  - Urinary incontinence [Not Recovered/Not Resolved]
  - Micturition urgency [Not Recovered/Not Resolved]
  - Anaesthetic complication [Unknown]
  - Purulent discharge [Unknown]
  - Device issue [Recovered/Resolved]
  - Dyspareunia [Not Recovered/Not Resolved]
  - Anaemia [Not Recovered/Not Resolved]
  - Muscle spasms [Not Recovered/Not Resolved]
  - Abnormal uterine bleeding [Not Recovered/Not Resolved]
  - Pain [Not Recovered/Not Resolved]
  - Menstruation irregular [Not Recovered/Not Resolved]
  - Off label use [Unknown]
  - Device use issue [Unknown]
  - Device dislocation [Not Recovered/Not Resolved]
  - Pelvic pain [Unknown]
  - Intermenstrual bleeding [Unknown]
  - Device expulsion [Recovered/Resolved]

NARRATIVE: CASE EVENT DATE: 20120305
